FAERS Safety Report 4641077-8 (Version None)
Quarter: 2005Q2

REPORT INFORMATION
  Report Type: 
  Country: None (occurrence: None)
  Receive Date: 20050421
  Receipt Date: 20050301
  Transmission Date: 20051028
  Serious: Yes (Hospitalization, Other)
  Sender: FDA-Public Use
  Company Number: PHEH2005US02626

PATIENT
  Age: 35 Year
  Sex: Female
  Weight: 112 kg

DRUGS (6)
  1. CLOZARIL [Suspect]
     Indication: SCHIZOAFFECTIVE DISORDER
     Dosage: 150 MG, BID
     Route: 048
     Dates: start: 20050216, end: 20050301
  2. DEPAKOTE [Concomitant]
     Indication: SCHIZOAFFECTIVE DISORDER
     Dosage: 500 MG, BID
     Route: 048
  3. ZOLOFT [Concomitant]
     Indication: DEPRESSION
     Dosage: 150 MG, QD
     Route: 048
  4. ATIVAN [Interacting]
     Dosage: UNK, PRN
  5. IMODIUM [Concomitant]
  6. MOTRIN [Concomitant]

REACTIONS (23)
  - ABDOMINAL PAIN [None]
  - ANTIPSYCHOTIC DRUG LEVEL INCREASED [None]
  - BACTERIA STOOL IDENTIFIED [None]
  - BAND NEUTROPHIL COUNT INCREASED [None]
  - BLOOD CHLORIDE DECREASED [None]
  - BLOOD GLUCOSE INCREASED [None]
  - BLOOD POTASSIUM DECREASED [None]
  - BLOOD SODIUM DECREASED [None]
  - DIARRHOEA INFECTIOUS [None]
  - ENTEROCOCCAL INFECTION [None]
  - EOSINOPHIL COUNT INCREASED [None]
  - HEPATOMEGALY [None]
  - HYPOVOLAEMIA [None]
  - LEUKOCYTOSIS [None]
  - LYMPHOCYTE COUNT DECREASED [None]
  - NAUSEA [None]
  - NEUTROPHIL COUNT INCREASED [None]
  - PERICARDIAL EFFUSION [None]
  - PERICARDIAL FIBROSIS [None]
  - PLEURAL EFFUSION [None]
  - PYREXIA [None]
  - URINARY TRACT INFECTION [None]
  - VOMITING [None]
